FAERS Safety Report 23428250 (Version 1)
Quarter: 2024Q1

REPORT INFORMATION
  Report Type: Spontaneous
  Country: US (occurrence: US)
  Receive Date: 20240122
  Receipt Date: 20240122
  Transmission Date: 20240410
  Serious: No
  Sender: FDA-Public Use
  Company Number: US-PFIZER INC-PV202400007898

PATIENT
  Age: 82 Year
  Sex: Female

DRUGS (4)
  1. LINEZOLID [Suspect]
     Active Substance: LINEZOLID
     Indication: Atypical mycobacterial lower respiratory tract infection
     Dosage: UNK
  2. SULFAMETHOXAZOLE\TRIMETHOPRIM [Suspect]
     Active Substance: SULFAMETHOXAZOLE\TRIMETHOPRIM
     Indication: Atypical mycobacterial lower respiratory tract infection
     Dosage: UNK
  3. TETRACYCLINE [Suspect]
     Active Substance: TETRACYCLINE
     Indication: Atypical mycobacterial lower respiratory tract infection
     Dosage: UNK
  4. CEFOXITIN [Suspect]
     Active Substance: CEFOXITIN SODIUM
     Indication: Atypical mycobacterial lower respiratory tract infection
     Dosage: UNK

REACTIONS (3)
  - Drug resistance [Unknown]
  - Off label use [Unknown]
  - Drug ineffective for unapproved indication [Unknown]
